FAERS Safety Report 5481258-7 (Version None)
Quarter: 2007Q4

REPORT INFORMATION
  Report Type: 
  Country: None (occurrence: None)
  Receive Date: 20071010
  Receipt Date: 20071005
  Transmission Date: 20080405
  Serious: Yes (Other)
  Sender: FDA-Public Use
  Company Number: US-BRISTOL-MYERS SQUIBB COMPANY-13931126

PATIENT
  Age: 58 Year
  Sex: Male

DRUGS (3)
  1. SINEMET [Suspect]
     Indication: PARKINSON'S DISEASE
     Dosage: 1 DOSAGE FORM = 1 TABLET;25 / 100 MG
     Route: 048
     Dates: start: 20050501
  2. LEXAPRO [Concomitant]
  3. COMTAN [Concomitant]

REACTIONS (1)
  - SKIN CANCER [None]
